FAERS Safety Report 21058713 (Version 1)
Quarter: 2022Q3

REPORT INFORMATION
  Report Type: Spontaneous
  Country: US (occurrence: None)
  Receive Date: 20220708
  Receipt Date: 20220708
  Transmission Date: 20221027
  Serious: No
  Sender: FDA-Public Use
  Company Number: None

PATIENT
  Age: 73 Year
  Sex: Female
  Weight: 61.23 kg

DRUGS (20)
  1. XGEVA [Suspect]
     Active Substance: DENOSUMAB
     Indication: Breast cancer female
     Dosage: FREQUENCY : MONTHLY;?
     Route: 058
     Dates: start: 202104
  2. ALLOPURINOL [Concomitant]
     Active Substance: ALLOPURINOL
  3. ANASTROZOLE [Concomitant]
     Active Substance: ANASTROZOLE
  4. CHLORPROMAZINE [Concomitant]
     Active Substance: CHLORPROMAZINE
  5. DULCOLAX NOS [Concomitant]
     Active Substance: BISACODYL OR DOCUSATE SODIUM
  6. ELIQUIS [Concomitant]
     Active Substance: APIXABAN
  7. ENULOSE [Concomitant]
     Active Substance: LACTULOSE
  8. FENOFIBRATE [Concomitant]
     Active Substance: FENOFIBRATE
  9. FERROUS SULFATE [Concomitant]
     Active Substance: FERROUS SULFATE
  10. FULVESTRANT [Concomitant]
     Active Substance: FULVESTRANT
  11. IBRANCE [Concomitant]
     Active Substance: PALBOCICLIB
  12. LACTULOSE [Concomitant]
     Active Substance: LACTULOSE
  13. LEVOTHYROXINE [Concomitant]
     Active Substance: LEVOTHYROXINE
  14. OLANZAPINE [Concomitant]
     Active Substance: OLANZAPINE
  15. QUETIAPINE [Concomitant]
     Active Substance: QUETIAPINE
  16. RISPERIDONE [Concomitant]
     Active Substance: RISPERIDONE
  17. DOCUSATE SODIUM\SENNOSIDES [Concomitant]
     Active Substance: DOCUSATE SODIUM\SENNOSIDES
  18. SERTRALINE [Concomitant]
     Active Substance: SERTRALINE HYDROCHLORIDE
  19. TRAMADOL [Concomitant]
     Active Substance: TRAMADOL
  20. TYLENOL [Concomitant]
     Active Substance: ACETAMINOPHEN

REACTIONS (2)
  - Asthenia [None]
  - White blood cell count abnormal [None]
